FAERS Safety Report 6880799-5 (Version None)
Quarter: 2010Q3

REPORT INFORMATION
  Report Type: 
  Country: None (occurrence: None)
  Receive Date: 20100728
  Receipt Date: 20100719
  Transmission Date: 20110219
  Serious: Yes (Hospitalization)
  Sender: FDA-Public Use
  Company Number: JP-BRISTOL-MYERS SQUIBB COMPANY-14762579

PATIENT
  Age: 63 Year
  Sex: Male
  Weight: 44 kg

DRUGS (7)
  1. CETUXIMAB [Suspect]
     Indication: HEAD AND NECK CANCER
     Dosage: STRENGTH = 5MG/ML
     Route: 042
     Dates: start: 20090609, end: 20090727
  2. RADIATION THERAPY [Suspect]
     Indication: HEAD AND NECK CANCER
     Dosage: TOTAL DOSE OF 72 GRAY (GY)
     Dates: start: 20090615, end: 20090728
  3. CALONAL [Concomitant]
     Indication: ANALGESIC THERAPY
     Route: 048
     Dates: start: 20090421, end: 20090827
  4. MAGLAX [Concomitant]
     Indication: LAXATIVE SUPPORTIVE CARE
     Route: 048
     Dates: start: 20090507, end: 20090827
  5. ENSURE [Concomitant]
     Indication: MEDICAL DIET
     Dosage: 1 DF = 250ML - 500ML
     Route: 048
     Dates: start: 20090703, end: 20090827
  6. AZUNOL [Concomitant]
     Indication: INFECTION PROPHYLAXIS
     Dosage: GARGLE
     Dates: start: 20090706
  7. XYLOCAINE VISCOUS [Concomitant]
     Indication: ANALGESIC THERAPY
     Dosage: GARGLE
     Dates: start: 20090713

REACTIONS (19)
  - ALANINE AMINOTRANSFERASE INCREASED [None]
  - ASPARTATE AMINOTRANSFERASE INCREASED [None]
  - CHOKING [None]
  - DECREASED APPETITE [None]
  - DELIRIUM [None]
  - HAEMOGLOBIN DECREASED [None]
  - HYPOPHAGIA [None]
  - ILLUSION [None]
  - INCOHERENT [None]
  - INFECTION [None]
  - LYMPHOCYTE COUNT DECREASED [None]
  - MUCOSAL INFLAMMATION [None]
  - NEUTROPENIA [None]
  - PAIN [None]
  - PNEUMONIA ASPIRATION [None]
  - RADIATION SKIN INJURY [None]
  - SPUTUM RETENTION [None]
  - STAPHYLOCOCCAL INFECTION [None]
  - WHITE BLOOD CELL COUNT DECREASED [None]
